FAERS Safety Report 6279930-4 (Version None)
Quarter: 2009Q3

REPORT INFORMATION
  Report Type: 
  Country: None (occurrence: None)
  Receive Date: 20090723
  Receipt Date: 20090304
  Transmission Date: 20100115
  Serious: Yes (Other)
  Sender: FDA-Public Use
  Company Number: US-AMGEN-US336928

PATIENT
  Age: 77 Year
  Sex: Male
  Weight: 99.9 kg

DRUGS (3)
  1. EPOGEN [Suspect]
     Indication: ANAEMIA
     Route: 058
     Dates: start: 20090101
  2. ALLOPURINOL [Concomitant]
     Dates: end: 20090303
  3. IMURAN [Concomitant]

REACTIONS (1)
  - DRUG INEFFECTIVE [None]
